FAERS Safety Report 7011319-2 (Version None)
Quarter: 2010Q3

REPORT INFORMATION
  Report Type: 
  Country: None (occurrence: None)
  Receive Date: 20100923
  Receipt Date: 20090129
  Transmission Date: 20110219
  Serious: Yes (Hospitalization, Other)
  Sender: FDA-Public Use
  Company Number: US-WYE-H07305708

PATIENT
  Sex: Female
  Weight: 88.53 kg

DRUGS (2)
  1. PREMARIN [Suspect]
  2. MEDROXYPROGESTERONE ACETATE [Suspect]
     Dosage: 2.5 MG, FREQUENCY UNKNOWN

REACTIONS (1)
  - BREAST CANCER [None]
